FAERS Safety Report 21263090 (Version 1)
Quarter: 2022Q3

REPORT INFORMATION
  Report Type: Spontaneous
  Country: US (occurrence: US)
  Receive Date: 20220828
  Receipt Date: 20220828
  Transmission Date: 20221027
  Serious: Yes (Other)
  Sender: FDA-Public Use
  Company Number: US-BEH-2022148861

PATIENT
  Sex: Male

DRUGS (1)
  1. HIZENTRA [Suspect]
     Active Substance: HUMAN IMMUNOGLOBULIN G
     Indication: Humoral immune defect
     Dosage: 16 GRAM, QW
     Route: 058
     Dates: start: 20211222

REACTIONS (3)
  - Haemorrhage [Unknown]
  - Skin irritation [Unknown]
  - Swelling [Unknown]
